FAERS Safety Report 23805685 (Version 1)
Quarter: 2024Q2

REPORT INFORMATION
  Report Type: Spontaneous
  Country: GB (occurrence: GB)
  Receive Date: 20240502
  Receipt Date: 20240502
  Transmission Date: 20240716
  Serious: Yes (Other)
  Sender: FDA-Public Use
  Company Number: None

PATIENT
  Age: 85 Year
  Sex: Male
  Weight: 77 kg

DRUGS (11)
  1. BISOPROLOL [Suspect]
     Active Substance: BISOPROLOL\BISOPROLOL FUMARATE
     Dosage: DURATION: 31 DAYS
     Route: 065
     Dates: start: 20240212, end: 20240314
  2. ENTRESTO [Concomitant]
     Active Substance: SACUBITRIL\VALSARTAN
     Dates: start: 20240415
  3. FOLIC ACID [Concomitant]
     Active Substance: FOLIC ACID
     Dosage: FOR 4 MONTHS, DURATION: 56 DAYS
     Dates: start: 20240122, end: 20240318
  4. FUROSEMIDE [Concomitant]
     Active Substance: FUROSEMIDE
     Dosage: AS DIRECTED
     Dates: start: 20240112
  5. PANTOPRAZOLE [Concomitant]
     Active Substance: PANTOPRAZOLE
     Dosage: WHILST TAKING CLOPOD...
     Dates: start: 20240112
  6. SACUBITRIL [Concomitant]
     Active Substance: SACUBITRIL
     Indication: Cardiac failure
     Dosage: FOR TREATING HEART ...
     Dates: start: 20240112
  7. DAPAGLIFLOZIN [Concomitant]
     Active Substance: DAPAGLIFLOZIN
     Indication: Cardiac failure
     Dates: start: 20240112
  8. ASPIRIN [Concomitant]
     Active Substance: ASPIRIN
     Dosage: TAKE WITH FOOD*
     Dates: start: 20240112
  9. BUDESONIDE\FORMOTEROL FUMARATE [Concomitant]
     Active Substance: BUDESONIDE\FORMOTEROL FUMARATE
     Indication: Dyspnoea
     Dosage: PUFFS
     Dates: start: 20240112
  10. SPIRONOLACTONE [Concomitant]
     Active Substance: SPIRONOLACTONE
     Dates: start: 20240319
  11. NITROGLYCERIN [Concomitant]
     Active Substance: NITROGLYCERIN
     Dosage: SPRAY ONE TO TWO DOSES UNDER THE TONGUE (THEN C...
     Route: 060
     Dates: start: 20240112

REACTIONS (3)
  - Pruritus [Recovered/Resolved]
  - Myalgia [Unknown]
  - Confusional state [Unknown]

NARRATIVE: CASE EVENT DATE: 20240220
